FAERS Safety Report 17854171 (Version 3)
Quarter: 2020Q4

REPORT INFORMATION
  Report Type: Report from Study
  Country: None (occurrence: US)
  Receive Date: 20200603
  Receipt Date: 20201230
  Transmission Date: 20210113
  Serious: Yes (Hospitalization)
  Sender: FDA-Public Use
  Company Number: US-INSMED, INC.-US-INS-20-00904

PATIENT
  Sex: Male

DRUGS (2)
  1. ARIKAYCE [Suspect]
     Active Substance: AMIKACIN
     Indication: PRODUCT USED FOR UNKNOWN INDICATION
     Route: 055
     Dates: start: 2020, end: 2020
  2. ARIKAYCE [Suspect]
     Active Substance: AMIKACIN
     Route: 055
     Dates: start: 2020, end: 2020

REACTIONS (5)
  - Myocardial infarction [Unknown]
  - Respiratory tract congestion [Unknown]
  - Illness [Unknown]
  - Pain [Unknown]
  - Secretion discharge [Unknown]

NARRATIVE: CASE EVENT DATE: 2020
